FAERS Safety Report 17684803 (Version 2)
Quarter: 2021Q2

REPORT INFORMATION
  Report Type: Spontaneous
  Country: US (occurrence: US)
  Receive Date: 20200420
  Receipt Date: 20210415
  Transmission Date: 20210716
  Serious: Yes (Hospitalization, Other)
  Sender: FDA-Public Use
  Company Number: US-ASTRAZENECA-2020SE50738

PATIENT
  Age: 23534 Day
  Sex: Male
  Weight: 117.9 kg

DRUGS (35)
  1. ACIPHEX [Concomitant]
     Active Substance: RABEPRAZOLE SODIUM
  2. DIPHENHYDRAMINE. [Concomitant]
     Active Substance: DIPHENHYDRAMINE
  3. ALPRAZOLAM. [Concomitant]
     Active Substance: ALPRAZOLAM
  4. TRIAMCINOLONE [Concomitant]
     Active Substance: TRIAMCINOLONE
  5. XARELTO [Concomitant]
     Active Substance: RIVAROXABAN
  6. AZITHROMYCIN ANHYDROUS. [Concomitant]
     Active Substance: AZITHROMYCIN ANHYDROUS
  7. PROAIR HFA [Concomitant]
     Active Substance: ALBUTEROL SULFATE
  8. AMBIEN [Concomitant]
     Active Substance: ZOLPIDEM TARTRATE
  9. ATENOLOL. [Concomitant]
     Active Substance: ATENOLOL
  10. SULFAMETH [Concomitant]
  11. AZITHROMYCIN ANHYDROUS. [Concomitant]
     Active Substance: AZITHROMYCIN ANHYDROUS
  12. AMOXICILLIN. [Concomitant]
     Active Substance: AMOXICILLIN
  13. MELOXICAM. [Concomitant]
     Active Substance: MELOXICAM
  14. HYDROCODONE [Concomitant]
     Active Substance: HYDROCODONE
  15. NAPROXEN. [Concomitant]
     Active Substance: NAPROXEN
  16. METFORMIN [Concomitant]
     Active Substance: METFORMIN HYDROCHLORIDE
  17. KLOR?CON [Concomitant]
     Active Substance: POTASSIUM CHLORIDE
  18. OXYCODONE [Concomitant]
     Active Substance: OXYCODONE
  19. LIDODERM [Concomitant]
     Active Substance: LIDOCAINE
  20. HYDROCORTISONE. [Concomitant]
     Active Substance: HYDROCORTISONE
  21. METHYLPREDNISOLONE. [Concomitant]
     Active Substance: METHYLPREDNISOLONE
  22. PRILOSEC OTC [Suspect]
     Active Substance: OMEPRAZOLE MAGNESIUM
     Route: 048
     Dates: start: 200506, end: 200609
  23. AMOX [Concomitant]
     Active Substance: UNSPECIFIED INGREDIENT
  24. FUROSEMIDE. [Concomitant]
     Active Substance: FUROSEMIDE
  25. PRILOSEC [Suspect]
     Active Substance: OMEPRAZOLE MAGNESIUM
     Route: 048
     Dates: start: 200506, end: 200609
  26. CELEBREX [Concomitant]
     Active Substance: CELECOXIB
  27. SIMVASTATIN. [Concomitant]
     Active Substance: SIMVASTATIN
  28. GEMFIBROZIL. [Concomitant]
     Active Substance: GEMFIBROZIL
  29. CEPHALEXIN. [Concomitant]
     Active Substance: CEPHALEXIN
  30. PREDNISONE. [Concomitant]
     Active Substance: PREDNISONE
  31. PAROXETINE. [Concomitant]
     Active Substance: PAROXETINE
  32. LEVAQUIN [Concomitant]
     Active Substance: LEVOFLOXACIN
  33. AMITRIPTYLINE [Concomitant]
     Active Substance: AMITRIPTYLINE
  34. COMBIVENT [Concomitant]
     Active Substance: ALBUTEROL SULFATE\IPRATROPIUM BROMIDE
  35. METFORMIN [Concomitant]
     Active Substance: METFORMIN HYDROCHLORIDE

REACTIONS (4)
  - Chronic kidney disease [Unknown]
  - Renal failure [Unknown]
  - Hyperkalaemia [Unknown]
  - Acute kidney injury [Unknown]

NARRATIVE: CASE EVENT DATE: 20150720
